FAERS Safety Report 4616180-9 (Version None)
Quarter: 2005Q1

REPORT INFORMATION
  Report Type: 
  Country: None (occurrence: None)
  Receive Date: 20050317
  Receipt Date: 20050303
  Transmission Date: 20050727
  Serious: Yes (Hospitalization)
  Sender: FDA-Public Use
  Company Number: 2005-DE-00863DE

PATIENT
  Age: 6 Month
  Sex: Male

DRUGS (1)
  1. ATROVENT [Suspect]
     Dosage: STRENGHT 0,025% - 30 ML OVER 2 WEEKS (SEE TEXT) PO
     Route: 048

REACTIONS (2)
  - ACCIDENTAL EXPOSURE [None]
  - AGITATION [None]
